FAERS Safety Report 13514170 (Version 1)
Quarter: 2017Q2

REPORT INFORMATION
  Report Type: Spontaneous
  Country: US (occurrence: US)
  Receive Date: 20170504
  Receipt Date: 20170504
  Transmission Date: 20170830
  Serious: No
  Sender: FDA-Public Use
  Company Number: US-ABBVIE-16P-163-1637961-00

PATIENT
  Sex: Female
  Weight: 55.84 kg

DRUGS (11)
  1. CREON [Suspect]
     Active Substance: PANCRELIPASE AMYLASE\PANCRELIPASE LIPASE\PANCRELIPASE PROTEASE
     Indication: PANCREATIC ENZYMES
     Route: 048
     Dates: start: 2015
  2. TRAZODONE [Concomitant]
     Active Substance: TRAZODONE HYDROCHLORIDE
     Indication: SLEEP DISORDER THERAPY
     Dosage: AT BEDTIME- TAKE WITH CLONAZEPAM
     Route: 048
  3. GATTEX [Concomitant]
     Active Substance: TEDUGLUTIDE\WATER
     Indication: SHORT-BOWEL SYNDROME
     Route: 058
  4. SODIUM BICARB [Concomitant]
     Active Substance: SODIUM BICARBONATE
     Indication: SHORT-BOWEL SYNDROME
     Route: 065
  5. VITAMIN B12 [Concomitant]
     Active Substance: CYANOCOBALAMIN
     Indication: SHORT-BOWEL SYNDROME
     Route: 050
  6. MAGNESIUM [Concomitant]
     Active Substance: MAGNESIUM
     Indication: SHORT-BOWEL SYNDROME
     Route: 042
  7. MULTIVITAMIN [Concomitant]
     Active Substance: VITAMINS
     Indication: SHORT-BOWEL SYNDROME
     Route: 065
  8. VITAMIN D3 [Concomitant]
     Active Substance: CHOLECALCIFEROL
     Indication: SHORT-BOWEL SYNDROME
     Route: 065
  9. CLONAZEPAM. [Concomitant]
     Active Substance: CLONAZEPAM
     Indication: SLEEP DISORDER THERAPY
     Dosage: AT BEDTIME-TAKE WITH TRAZODONE
     Route: 048
  10. NICOTROL [Suspect]
     Active Substance: NICOTINE
     Indication: EX-TOBACCO USER
     Dosage: 1-2 CARTRIDGES/DAY ALL DAY EVERY 15-30 MIN
     Route: 055
     Dates: start: 201408
  11. NIFEDIPINE. [Concomitant]
     Active Substance: NIFEDIPINE
     Indication: BLOOD PRESSURE MEASUREMENT
     Route: 048

REACTIONS (3)
  - Drug ineffective [Unknown]
  - Nicotine dependence [Unknown]
  - Weight increased [Recovering/Resolving]
